FAERS Safety Report 12767746 (Version 1)
Quarter: 2016Q3

REPORT INFORMATION
  Report Type: Spontaneous
  Country: US (occurrence: US)
  Receive Date: 20160921
  Receipt Date: 20160921
  Transmission Date: 20161109
  Serious: Yes (Other)
  Sender: FDA-Public Use
  Company Number: US-JNJFOC-20160919052

PATIENT
  Age: 54 Year
  Sex: Female
  Weight: 74.84 kg

DRUGS (2)
  1. ASPIRIN. [Concomitant]
     Active Substance: ASPIRIN
     Indication: CARDIAC DISORDER
     Route: 065
     Dates: start: 2014
  2. SIMPONI ARIA [Suspect]
     Active Substance: GOLIMUMAB
     Indication: RHEUMATOID ARTHRITIS
     Route: 042
     Dates: start: 2016

REACTIONS (3)
  - Cholelithiasis [Not Recovered/Not Resolved]
  - Cholecystitis [Not Recovered/Not Resolved]
  - Gallbladder enlargement [Not Recovered/Not Resolved]

NARRATIVE: CASE EVENT DATE: 20160915
